FAERS Safety Report 15669830 (Version 7)
Quarter: 2020Q1

REPORT INFORMATION
  Report Type: Spontaneous
  Country: CA (occurrence: CA)
  Receive Date: 20181129
  Receipt Date: 20200109
  Transmission Date: 20200409
  Serious: Yes (Hospitalization, Other)
  Sender: FDA-Public Use
  Company Number: CA-TEVA-2018-CA-980436

PATIENT
  Sex: Male

DRUGS (49)
  1. RISPERIDONE. [Suspect]
     Active Substance: RISPERIDONE
     Indication: SCHIZOPHRENIA
     Route: 065
  2. AMISULPRIDE [Suspect]
     Active Substance: AMISULPRIDE
     Indication: SCHIZOPHRENIA
     Route: 065
  3. THIORIDAZINE [Suspect]
     Active Substance: THIORIDAZINE
     Indication: SCHIZOPHRENIA
     Route: 065
  4. SAPHRIS [Concomitant]
     Active Substance: ASENAPINE MALEATE
  5. HALOPERIDOL. [Suspect]
     Active Substance: HALOPERIDOL
     Indication: SCHIZOPHRENIA
     Route: 065
  6. RISPERIDONE. [Suspect]
     Active Substance: RISPERIDONE
     Route: 065
  7. RISPERIDONE. [Suspect]
     Active Substance: RISPERIDONE
     Route: 065
  8. ARIPIPRAZOLE. [Suspect]
     Active Substance: ARIPIPRAZOLE
     Indication: SCHIZOPHRENIA
     Route: 065
  9. LITHIUM CARBONATE. [Suspect]
     Active Substance: LITHIUM CARBONATE
     Indication: SCHIZOPHRENIA
     Route: 065
  10. LOXAPINE SUCCINATE. [Suspect]
     Active Substance: LOXAPINE SUCCINATE
     Route: 065
  11. PERPHENAZINE. [Suspect]
     Active Substance: PERPHENAZINE
     Route: 065
  12. ZIPRASIDONE. [Suspect]
     Active Substance: ZIPRASIDONE
     Indication: SCHIZOPHRENIA
     Route: 065
  13. ABILIFY [Suspect]
     Active Substance: ARIPIPRAZOLE
     Indication: SCHIZOPHRENIA
     Route: 065
  14. SODIUM VALPROATE [Concomitant]
     Active Substance: VALPROATE SODIUM
     Route: 065
  15. ABILIFY [Concomitant]
     Active Substance: ARIPIPRAZOLE
  16. GABAPENTIN. [Suspect]
     Active Substance: GABAPENTIN
     Route: 065
  17. OLANZAPINE. [Suspect]
     Active Substance: OLANZAPINE
     Route: 065
  18. OLANZAPINE. [Suspect]
     Active Substance: OLANZAPINE
     Route: 065
  19. QUETIAPINE FUMARATE. [Suspect]
     Active Substance: QUETIAPINE FUMARATE
     Indication: SCHIZOPHRENIA
     Route: 065
  20. LOXAPINE SUCCINATE. [Suspect]
     Active Substance: LOXAPINE SUCCINATE
     Indication: SCHIZOPHRENIA
     Route: 065
  21. PERPHENAZINE. [Suspect]
     Active Substance: PERPHENAZINE
     Route: 065
  22. LITHIUM CARBONATE. [Suspect]
     Active Substance: LITHIUM CARBONATE
     Route: 065
  23. LOXAPINE SUCCINATE. [Suspect]
     Active Substance: LOXAPINE SUCCINATE
     Route: 065
  24. FLUOXETINE [Suspect]
     Active Substance: FLUOXETINE HYDROCHLORIDE
     Indication: SCHIZOPHRENIA
     Route: 065
  25. SAPHRIS [Suspect]
     Active Substance: ASENAPINE MALEATE
     Indication: SCHIZOPHRENIA
     Route: 065
  26. SODIUM VALPROATE [Concomitant]
     Active Substance: VALPROATE SODIUM
     Indication: SCHIZOPHRENIA
     Route: 065
  27. QUETIAPINE. [Concomitant]
     Active Substance: QUETIAPINE
  28. PERPHENAZINE. [Concomitant]
     Active Substance: PERPHENAZINE
  29. AMISULPRIDE [Concomitant]
     Active Substance: AMISULPRIDE
  30. FLUOXETINE HYDROCHLORIDE. [Suspect]
     Active Substance: FLUOXETINE HYDROCHLORIDE
     Indication: SCHIZOPHRENIA
     Route: 065
  31. CLOZAPINE. [Suspect]
     Active Substance: CLOZAPINE
     Indication: SCHIZOPHRENIA
     Route: 065
  32. LITHIUM CARBONATE. [Suspect]
     Active Substance: LITHIUM CARBONATE
     Route: 065
  33. PERPHENAZINE. [Suspect]
     Active Substance: PERPHENAZINE
     Indication: SCHIZOPHRENIA
     Route: 065
  34. CLOMIPRAMINE [Concomitant]
     Active Substance: CLOMIPRAMINE
  35. GABAPENTIN. [Suspect]
     Active Substance: GABAPENTIN
     Indication: SCHIZOPHRENIA
     Route: 065
  36. FLUPENTIXOL [Suspect]
     Active Substance: FLUPENTIXOL
     Indication: SCHIZOPHRENIA
     Route: 065
  37. LOXAPINE SUCCINATE. [Suspect]
     Active Substance: LOXAPINE SUCCINATE
     Route: 065
  38. PERPHENAZINE. [Suspect]
     Active Substance: PERPHENAZINE
     Route: 065
  39. TRIFLUOPERAZINE [Suspect]
     Active Substance: TRIFLUOPERAZINE HYDROCHLORIDE
     Indication: SCHIZOPHRENIA
     Route: 065
  40. CLOMIPRAMINE [Suspect]
     Active Substance: CLOMIPRAMINE
     Indication: SCHIZOPHRENIA
     Route: 065
  41. THIORIDAZINE [Concomitant]
     Active Substance: THIORIDAZINE
  42. VALPROATE SODIUM. [Concomitant]
     Active Substance: VALPROATE SODIUM
     Indication: SCHIZOPHRENIA
     Route: 065
  43. CITALOPRAM HYDROBROMIDE. [Suspect]
     Active Substance: CITALOPRAM HYDROBROMIDE
     Indication: SCHIZOPHRENIA
     Route: 065
  44. HALOPERIDOL. [Suspect]
     Active Substance: HALOPERIDOL
     Route: 065
  45. LOXAPINE SUCCINATE. [Suspect]
     Active Substance: LOXAPINE SUCCINATE
     Indication: PRODUCT USED FOR UNKNOWN INDICATION
     Route: 065
  46. OLANZAPINE. [Suspect]
     Active Substance: OLANZAPINE
     Indication: SCHIZOPHRENIA
     Route: 065
  47. ASENAPINE MALEATE [Suspect]
     Active Substance: ASENAPINE MALEATE
     Indication: SCHIZOPHRENIA
     Route: 065
  48. LOXAPINE SUCCINATE. [Suspect]
     Active Substance: LOXAPINE SUCCINATE
     Route: 065
  49. TRIFLUOPERAZINE TAB 5 MG [Concomitant]

REACTIONS (17)
  - Suicide attempt [Unknown]
  - Product use in unapproved indication [Unknown]
  - Obesity [Unknown]
  - Disinhibition [Unknown]
  - Therapeutic product effect incomplete [Unknown]
  - Toxicity to various agents [Unknown]
  - Weight increased [Unknown]
  - Antipsychotic drug level below therapeutic [Unknown]
  - Increased appetite [Unknown]
  - Prescribed overdose [Unknown]
  - Leukaemia [Unknown]
  - Akathisia [Unknown]
  - Therapeutic product effect variable [Unknown]
  - Euphoric mood [Unknown]
  - Leukopenia [Unknown]
  - Drug ineffective [Unknown]
  - Obsessive-compulsive disorder [Unknown]
